FAERS Safety Report 4992387-6 (Version None)
Quarter: 2006Q2

REPORT INFORMATION
  Report Type: 
  Country: None (occurrence: None)
  Receive Date: 20060502
  Receipt Date: 20060421
  Transmission Date: 20061013
  Serious: Yes (Other)
  Sender: FDA-Public Use
  Company Number: 2005173641

PATIENT
  Sex: Male
  Weight: 96.6162 kg

DRUGS (2)
  1. CELEBREX [Suspect]
     Indication: PAIN
     Dosage: 200 MG (200 MG, 1 IN 1 D), ORAL
     Route: 048
     Dates: end: 20060111
  2. LEXAPRO [Suspect]
     Indication: DEPRESSION
     Dosage: UNKNOWN
     Route: 065

REACTIONS (8)
  - ARTERIAL OCCLUSIVE DISEASE [None]
  - BLOOD CHOLESTEROL INCREASED [None]
  - CHEST PAIN [None]
  - DEPRESSION [None]
  - ELECTROCARDIOGRAM ABNORMAL [None]
  - MALAISE [None]
  - PAIN [None]
  - TREATMENT NONCOMPLIANCE [None]
